FAERS Safety Report 16360725 (Version 10)
Quarter: 2025Q3

REPORT INFORMATION
  Report Type: Spontaneous
  Country: EU (occurrence: EU)
  Receive Date: 20190528
  Receipt Date: 20250812
  Transmission Date: 20251020
  Serious: Yes (Other)
  Sender: AUROBINDO
  Company Number: None

PATIENT
  Age: 65 Year
  Sex: Female

DRUGS (28)
  1. ACETAMINOPHEN [Suspect]
     Active Substance: ACETAMINOPHEN
     Indication: Pain
     Dosage: 375 MILLIGRAM, FOUR TIMES/DAY
     Route: 065
  2. ACETAMINOPHEN [Suspect]
     Active Substance: ACETAMINOPHEN
     Dosage: 1500 MILLIGRAM, ONCE A DAY
     Route: 065
  3. ACETAMINOPHEN [Suspect]
     Active Substance: ACETAMINOPHEN
     Dosage: UNK UNK, ONCE A DAY
     Route: 065
  4. IBUPROFEN [Suspect]
     Active Substance: IBUPROFEN
     Indication: Pain
     Dosage: 400 MILLIGRAM, ONCE A DAY(AS NEEDED)
     Route: 065
  5. IBUPROFEN [Suspect]
     Active Substance: IBUPROFEN
     Indication: Back pain
     Route: 065
  6. IBUPROFEN [Suspect]
     Active Substance: IBUPROFEN
     Indication: Arthralgia
  7. DICLOFENAC [Suspect]
     Active Substance: DICLOFENAC
     Indication: Pain
     Route: 061
  8. DICLOFENAC [Suspect]
     Active Substance: DICLOFENAC
     Indication: Back pain
     Dosage: 75 MILLIGRAM, TWO TIMES A DAY
     Route: 061
  9. DICLOFENAC [Suspect]
     Active Substance: DICLOFENAC
     Indication: Arthralgia
     Route: 062
  10. DICLOFENAC [Suspect]
     Active Substance: DICLOFENAC
     Route: 061
  11. DICLOFENAC [Suspect]
     Active Substance: DICLOFENAC
     Indication: Pain
     Dosage: 150 MILLIGRAM, ONCE A DAY (75 MG, APPLIED FOR 12 HOURS)
     Route: 061
  12. DICLOFENAC [Suspect]
     Active Substance: DICLOFENAC
     Indication: Arthralgia
     Route: 061
  13. DICLOFENAC [Suspect]
     Active Substance: DICLOFENAC
     Dosage: 300 MILLIGRAM, ONCE A DAY,150 MG, BID
     Route: 065
  14. METAMIZOL [Suspect]
     Active Substance: METAMIZOLE SODIUM
     Indication: Pain
     Dosage: 500 MILLIGRAM, 3 TIMES A DAY
     Route: 065
  15. METAMIZOL [Suspect]
     Active Substance: METAMIZOLE SODIUM
     Indication: Back pain
     Dosage: 1500 MILLIGRAM, ONCE A DAY, 3 DOSAGES 500 MG DAILY
     Route: 065
  16. METAMIZOL [Suspect]
     Active Substance: METAMIZOLE SODIUM
     Indication: Arthralgia
     Dosage: 500 MILLIGRAM, ONCE A DAY
     Route: 065
  17. METAMIZOL [Suspect]
     Active Substance: METAMIZOLE SODIUM
     Dosage: 50 MILLIGRAM, 3 TIMES A DAY
     Route: 065
  18. METAMIZOL [Suspect]
     Active Substance: METAMIZOLE SODIUM
     Dosage: 3 UNK, ONCE A DAY
     Route: 065
  19. METAMIZOL [Suspect]
     Active Substance: METAMIZOLE SODIUM
     Route: 065
  20. METAMIZOL [Suspect]
     Active Substance: METAMIZOLE SODIUM
     Route: 065
  21. ACETAMINOPHEN\TRAMADOL [Suspect]
     Active Substance: ACETAMINOPHEN\TRAMADOL
     Indication: Pain
     Dosage: 4 DOSAGE FORM, ONCE A DAY
     Route: 065
  22. ACETAMINOPHEN\TRAMADOL [Suspect]
     Active Substance: ACETAMINOPHEN\TRAMADOL
     Route: 065
  23. TRAMADOL HYDROCHLORIDE [Suspect]
     Active Substance: TRAMADOL HYDROCHLORIDE
     Indication: Pain
     Dosage: 2 DOSAGES 100 MG DAILY
     Route: 065
  24. TRAMADOL HYDROCHLORIDE [Suspect]
     Active Substance: TRAMADOL HYDROCHLORIDE
     Dosage: 100 MILLIGRAM, TWO TIMES A DAY (100 MG, BID)
     Route: 065
  25. TRAMADOL HYDROCHLORIDE [Suspect]
     Active Substance: TRAMADOL HYDROCHLORIDE
     Route: 065
  26. TRAMADOL HYDROCHLORIDE [Suspect]
     Active Substance: TRAMADOL HYDROCHLORIDE
     Dosage: 200 MILLIGRAM, ONCE A DAY
     Route: 065
  27. TRAMADOL HYDROCHLORIDE [Suspect]
     Active Substance: TRAMADOL HYDROCHLORIDE
     Dosage: 200 MILLIGRAM, TWO TIMES A DAY
     Route: 065
  28. TRAMADOL HYDROCHLORIDE [Suspect]
     Active Substance: TRAMADOL HYDROCHLORIDE
     Dosage: 4 MICROGRAM PER LITRE(1,ONCE A DAY)
     Route: 065

REACTIONS (17)
  - Nausea [Recovered/Resolved]
  - Dry mouth [Recovered/Resolved]
  - Intervertebral disc disorder [Unknown]
  - Sacral pain [Recovering/Resolving]
  - Bone density decreased [Unknown]
  - Arthropathy [Unknown]
  - Spinal cord compression [Unknown]
  - Oedema peripheral [Unknown]
  - Osteoarthritis [Unknown]
  - Dyspepsia [Unknown]
  - Muscle tone disorder [Unknown]
  - Palpitations [Unknown]
  - Abdominal pain [Recovering/Resolving]
  - Abdominal pain upper [Recovering/Resolving]
  - Drug ineffective [Recovered/Resolved]
  - Heart rate increased [Unknown]
  - Off label use [Unknown]
